FAERS Safety Report 7232510-6 (Version None)
Quarter: 2011Q1

REPORT INFORMATION
  Report Type: 
  Country: None (occurrence: None)
  Receive Date: 20110119
  Receipt Date: 20110110
  Transmission Date: 20110831
  Serious: Yes (Hospitalization, Other)
  Sender: FDA-Public Use
  Company Number: CA-US-EMD SERONO, INC.-7011508

PATIENT
  Sex: Female

DRUGS (4)
  1. ALERTEC [Concomitant]
  2. LYRICA [Concomitant]
  3. REBIF [Suspect]
     Dates: start: 20101205
  4. REBIF [Suspect]
     Indication: MULTIPLE SCLEROSIS
     Dates: start: 20050530, end: 20100714

REACTIONS (7)
  - MULTIPLE SCLEROSIS RELAPSE [None]
  - DRUG EXPOSURE DURING PREGNANCY [None]
  - PYREXIA [None]
  - ABORTION SPONTANEOUS [None]
  - OPTIC NEURITIS [None]
  - NASOPHARYNGITIS [None]
  - CHILLS [None]
